FAERS Safety Report 4448940-1 (Version None)
Quarter: 2004Q3

REPORT INFORMATION
  Report Type: 
  Country: None (occurrence: None)
  Receive Date: 20040909
  Receipt Date: 20040824
  Transmission Date: 20050211
  Serious: Yes (Other)
  Sender: FDA-Public Use
  Company Number: US_0408105026

PATIENT
  Age: 31 Year
  Sex: Male

DRUGS (2)
  1. ZYPREXA [Suspect]
     Indication: BIPOLAR DISORDER
     Dosage: 15 MG
     Dates: start: 20010101, end: 20030101
  2. CLONAZEPAM [Concomitant]

REACTIONS (34)
  - ABDOMINAL PAIN [None]
  - AFFECTIVE DISORDER [None]
  - AGGRESSION [None]
  - ANXIETY [None]
  - ATTENTION DEFICIT/HYPERACTIVITY DISORDER [None]
  - CONVULSION [None]
  - DEPRESSED LEVEL OF CONSCIOUSNESS [None]
  - DISEASE RECURRENCE [None]
  - DRUG ABUSER [None]
  - FATIGUE [None]
  - HEADACHE [None]
  - HYPERSOMNIA [None]
  - HYPOGLYCAEMIA [None]
  - HYPOMANIA [None]
  - IMPAIRED HEALING [None]
  - IRRITABILITY [None]
  - LEARNING DISORDER [None]
  - MENTAL DISORDER [None]
  - MOOD ALTERED [None]
  - MUSCULOSKELETAL STIFFNESS [None]
  - NAUSEA [None]
  - NERVOUS SYSTEM DISORDER [None]
  - PERSONALITY DISORDER [None]
  - POLYURIA [None]
  - PSYCHIATRIC SYMPTOM [None]
  - SELF-INJURIOUS IDEATION [None]
  - SELF-MEDICATION [None]
  - SKIN ULCER [None]
  - SLEEP DISORDER [None]
  - SOCIAL AVOIDANT BEHAVIOUR [None]
  - STRESS SYMPTOMS [None]
  - TACHYPNOEA [None]
  - THIRST [None]
  - VOMITING [None]
